FAERS Safety Report 6581269-4 (Version None)
Quarter: 2010Q1

REPORT INFORMATION
  Report Type: 
  Country: None (occurrence: None)
  Receive Date: 20100203
  Receipt Date: 20100119
  Transmission Date: 20100710
  Serious: Yes (Death, Hospitalization)
  Sender: FDA-Public Use
  Company Number: 2010BI000158

PATIENT
  Age: 62 Year
  Sex: Female

DRUGS (5)
  1. ZEVALIN [Suspect]
     Indication: DIFFUSE LARGE B-CELL LYMPHOMA
  2. RITUXIMAB [Concomitant]
  3. ALKYLATORS [Concomitant]
  4. ANTHRACYCLINES [Concomitant]
  5. PREV MEDS [Concomitant]

REACTIONS (6)
  - BLOOD DISORDER [None]
  - DIARRHOEA [None]
  - FEBRILE NEUTROPENIA [None]
  - PULMONARY HAEMORRHAGE [None]
  - PYREXIA [None]
  - THROMBOCYTOPENIA [None]
